FAERS Safety Report 16626432 (Version 1)
Quarter: 2019Q3

REPORT INFORMATION
  Report Type: Spontaneous
  Country: US (occurrence: US)
  Receive Date: 20190724
  Receipt Date: 20190724
  Transmission Date: 20191004
  Serious: Yes (Other)
  Sender: FDA-Public Use
  Company Number: US-STRIDES ARCOLAB LIMITED-2018SP010689

PATIENT
  Age: 50 Year
  Sex: Male

DRUGS (11)
  1. ADALIMUMAB [Suspect]
     Active Substance: ADALIMUMAB
     Indication: SCLERITIS
  2. ADALIMUMAB [Suspect]
     Active Substance: ADALIMUMAB
     Indication: MACULAR OEDEMA
  3. PREDNISOLONE. [Suspect]
     Active Substance: PREDNISOLONE
     Indication: UVEITIS
     Dosage: UNK, LOW DOSE
     Route: 048
  4. PREDNISOLONE. [Suspect]
     Active Substance: PREDNISOLONE
     Indication: SCLERITIS
     Dosage: 20 MG DAILY
     Route: 048
  5. MYCOPHENOLATE MOFETIL. [Suspect]
     Active Substance: MYCOPHENOLATE MOFETIL
     Dosage: 3000 MG DAILY
     Route: 065
  6. PREDNISOLONE. [Suspect]
     Active Substance: PREDNISOLONE
     Indication: MACULAR OEDEMA
  7. MYCOPHENOLATE MOFETIL. [Suspect]
     Active Substance: MYCOPHENOLATE MOFETIL
     Indication: SCLERITIS
     Dosage: UNK
     Route: 065
  8. METHOTREXATE. [Suspect]
     Active Substance: METHOTREXATE
     Indication: UVEITIS
     Dosage: UNK
     Route: 058
  9. ADALIMUMAB [Suspect]
     Active Substance: ADALIMUMAB
     Indication: UVEITIS
     Dosage: 40MG EVERY OTHER WEEK
     Route: 065
  10. METHOTREXATE. [Suspect]
     Active Substance: METHOTREXATE
     Indication: MACULAR OEDEMA
  11. METHOTREXATE. [Suspect]
     Active Substance: METHOTREXATE
     Indication: SCLERITIS

REACTIONS (10)
  - Histoplasmosis [Recovered/Resolved]
  - Thrombocytopenia [Recovered/Resolved]
  - Dyspnoea [Recovered/Resolved]
  - Normocytic anaemia [Recovered/Resolved]
  - Off label use [Unknown]
  - Lethargy [Recovered/Resolved]
  - Abnormal loss of weight [Recovered/Resolved]
  - Abdominal pain [Recovered/Resolved]
  - Pyrexia [Recovered/Resolved]
  - Transaminases increased [Recovered/Resolved]
